FAERS Safety Report 7039373-2 (Version None)
Quarter: 2010Q4

REPORT INFORMATION
  Report Type: 
  Country: None (occurrence: None)
  Receive Date: 20101012
  Receipt Date: 20101011
  Transmission Date: 20110411
  Serious: Yes (Other)
  Sender: FDA-Public Use
  Company Number: ES-BRISTOL-MYERS SQUIBB COMPANY-15286198

PATIENT
  Age: 60 Year
  Sex: Male

DRUGS (2)
  1. ABILIFY [Suspect]
     Dosage: DECIDED TO INCREASE THE DOSE TO 15MG  INTERR ON 28AUG10 AGAIN INCREASED DOSE FROM 15MG TO 30MG
     Dates: start: 20100819
  2. SINEMET [Suspect]

REACTIONS (4)
  - AGGRESSION [None]
  - DELIRIUM [None]
  - DELUSION [None]
  - SOLILOQUY [None]
